FAERS Safety Report 6166383-X (Version None)
Quarter: 2009Q2

REPORT INFORMATION
  Report Type: 
  Country: None (occurrence: None)
  Receive Date: 20090424
  Receipt Date: 20081010
  Transmission Date: 20091009
  Serious: No
  Sender: FDA-Public Use
  Company Number: A0752422A

PATIENT
  Sex: Female

DRUGS (1)
  1. DEXEDRINE [Suspect]
     Indication: DRUG USE FOR UNKNOWN INDICATION
     Dosage: 10MG PER DAY
     Route: 065
     Dates: start: 20080901

REACTIONS (3)
  - DRUG INEFFECTIVE [None]
  - DYSPEPSIA [None]
  - HYPERCHLORHYDRIA [None]
